FAERS Safety Report 18749447 (Version 5)
Quarter: 2021Q1

REPORT INFORMATION
  Report Type: Report from Study
  Country: None (occurrence: ES)
  Receive Date: 20210116
  Receipt Date: 20210129
  Transmission Date: 20210419
  Serious: Yes (Death, Life-Threatening, Hospitalization)
  Sender: FDA-Public Use
  Company Number: ES-ABBVIE-20K-144-3690551-00

PATIENT
  Age: 72 Year
  Sex: Female

DRUGS (3)
  1. DUODOPA [Suspect]
     Active Substance: CARBIDOPA\LEVODOPA
     Indication: PARKINSON^S DISEASE
     Dosage: 3 ML/H, 16 HOURS A DAY
     Route: 050
     Dates: start: 20200616, end: 202006
  2. DUODOPA [Suspect]
     Active Substance: CARBIDOPA\LEVODOPA
     Dosage: 3 ML/H, 16 HOURS A DAY. STRENGTH (CMP)? 20 MG/ML 5 MG/ML
     Route: 050
     Dates: start: 20200624, end: 202101
  3. NEUPRO [Concomitant]
     Active Substance: ROTIGOTINE
     Indication: PRODUCT USED FOR UNKNOWN INDICATION
     Dosage: NEUPRO PATCH

REACTIONS (12)
  - Cardio-respiratory arrest [Fatal]
  - Nervousness [Unknown]
  - Device issue [Unknown]
  - Screaming [Unknown]
  - Blood glucose increased [Unknown]
  - Troponin increased [Unknown]
  - Electroencephalogram abnormal [Unknown]
  - Headache [Unknown]
  - Stoma site pain [Recovered/Resolved]
  - Blood pressure increased [Not Recovered/Not Resolved]
  - Headache [Recovered/Resolved]
  - Cardiac arrest [Fatal]

NARRATIVE: CASE EVENT DATE: 2020
